FAERS Safety Report 25393412 (Version 1)
Quarter: 2025Q2

REPORT INFORMATION
  Report Type: Spontaneous
  Country: FR (occurrence: FR)
  Receive Date: 20250604
  Receipt Date: 20250604
  Transmission Date: 20250716
  Serious: Yes (Other)
  Sender: TEVA
  Company Number: FR-TEVA-VS-3337179

PATIENT

DRUGS (1)
  1. SUNITINIB [Suspect]
     Active Substance: SUNITINIB
     Indication: Neoplasm malignant
     Route: 065

REACTIONS (1)
  - Skin ulcer [Unknown]
